FAERS Safety Report 13425442 (Version 2)
Quarter: 2017Q2

REPORT INFORMATION
  Report Type: Spontaneous
  Country: FR (occurrence: FR)
  Receive Date: 20170411
  Receipt Date: 20170624
  Transmission Date: 20170830
  Serious: Yes (Death, Life-Threatening, Other)
  Sender: FDA-Public Use
  Company Number: FR-BRISTOL-MYERS SQUIBB COMPANY-BMS-2017-029147

PATIENT
  Age: 62 Year
  Sex: Male
  Weight: 43.5 kg

DRUGS (1)
  1. OPDIVO [Suspect]
     Active Substance: NIVOLUMAB
     Indication: RENAL CANCER STAGE IV
     Dosage: 3 MG/KG, UNK
     Route: 042
     Dates: start: 20170309

REACTIONS (7)
  - Adrenocortical insufficiency acute [Recovering/Resolving]
  - Thrombocytopenia [Recovering/Resolving]
  - Organ failure [Fatal]
  - Bronchiectasis [Unknown]
  - Hepatic failure [Fatal]
  - Metastases to liver [Unknown]
  - Acute kidney injury [Fatal]

NARRATIVE: CASE EVENT DATE: 20170322
